FAERS Safety Report 6105676-9 (Version None)
Quarter: 2009Q1

REPORT INFORMATION
  Report Type: 
  Country: None (occurrence: None)
  Receive Date: 20090306
  Receipt Date: 20090223
  Transmission Date: 20090719
  Serious: Yes (Life-Threatening, Hospitalization)
  Sender: FDA-Public Use
  Company Number: JP-PFIZER INC-2009172628

PATIENT

DRUGS (12)
  1. TOPOTECIN [Suspect]
     Indication: GASTRIC CANCER
     Dosage: 120 MG (80 MG/M2, INTERMITTENT 1/13, 1/20, 1/27) WEEKLY
     Route: 041
     Dates: start: 20090113, end: 20090127
  2. NASEA [Concomitant]
  3. DEXAMETHASONE SODIUM PHOSPHATE [Concomitant]
  4. TAKEPRON [Concomitant]
     Dosage: 30 MG, 1X/DAY
     Route: 048
     Dates: start: 20080321
  5. ENSURE [Concomitant]
     Dosage: QUANTITY OF ONCE: 250
     Route: 048
     Dates: start: 20081217
  6. BIOFERMIN [Concomitant]
     Dosage: 3 G (1 G), 3X/DAY
     Route: 048
     Dates: start: 20081203
  7. SUCRALFATE [Concomitant]
     Dosage: 3 G (1 G), 3X/DAY
     Route: 048
     Dates: start: 20081203
  8. ALBUMIN TANNATE [Concomitant]
     Dosage: 3 G (1 G), 3X/DAY
     Route: 048
     Dates: start: 20081203
  9. SODIUM CHLORIDE [Concomitant]
     Dosage: 6 G (2 G), 3X/DAY
     Route: 048
     Dates: start: 20081203
  10. CRAVIT [Concomitant]
     Dosage: 400 MG (200 MG), 2X/DAY
     Route: 048
     Dates: start: 20080202, end: 20080209
  11. VANCOMYCIN HYDROCHLORIDE [Concomitant]
     Dosage: 500 MG (125 MG), 4X/DAY
     Route: 048
     Dates: start: 20080209
  12. METRONIDAZOLE [Concomitant]
     Dosage: 1500 MG (500 MG), 3X/DAY
     Route: 048
     Dates: start: 20080213

REACTIONS (2)
  - DIARRHOEA [None]
  - PSEUDOMEMBRANOUS COLITIS [None]
